FAERS Safety Report 9236768 (Version 1)
Quarter: 2013Q2

REPORT INFORMATION
  Report Type: Spontaneous
  Country: DE (occurrence: None)
  Receive Date: 20130415
  Receipt Date: 20130415
  Transmission Date: 20140414
  Serious: Yes (Other)
  Sender: FDA-Public Use
  Company Number: DE-20130048

PATIENT
  Age: 56 Year
  Sex: Male
  Weight: 90 kg

DRUGS (2)
  1. DOTAREM [Suspect]
     Indication: NUCLEAR MAGNETIC RESONANCE IMAGING
     Dosage: 15 ML, 1 IN 1 D
     Route: 042
     Dates: start: 20130327, end: 20130327
  2. PRESBYCUSIS [Concomitant]

REACTIONS (3)
  - Dyspnoea [None]
  - Erythema [None]
  - Urticaria [None]
